FAERS Safety Report 5483369-9 (Version None)
Quarter: 2007Q4

REPORT INFORMATION
  Report Type: 
  Country: None (occurrence: None)
  Receive Date: 20071012
  Receipt Date: 20071001
  Transmission Date: 20080405
  Serious: Yes (Death, Life-Threatening)
  Sender: FDA-Public Use
  Company Number: ZA-JNJFOC-20071002214

PATIENT

DRUGS (1)
  1. REOPRO [Suspect]
     Indication: THROMBOSIS
     Route: 042

REACTIONS (1)
  - HAEMORRHAGE [None]
